FAERS Safety Report 21924031 (Version 2)
Quarter: 2025Q1

REPORT INFORMATION
  Report Type: Spontaneous
  Country: US (occurrence: US)
  Receive Date: 20230130
  Receipt Date: 20250227
  Transmission Date: 20250409
  Serious: No
  Sender: UCB
  Company Number: US-UCBSA-2021059919

PATIENT
  Age: 3 Day
  Sex: Female

DRUGS (9)
  1. LEVETIRACETAM [Suspect]
     Active Substance: LEVETIRACETAM
     Indication: Seizure
  2. CARBAMAZEPINE [Concomitant]
     Active Substance: CARBAMAZEPINE
     Indication: Seizure
  3. CLOBAZAM [Concomitant]
     Active Substance: CLOBAZAM
     Indication: Seizure
  4. CLONAZEPAM [Concomitant]
     Active Substance: CLONAZEPAM
     Indication: Seizure
  5. PHENOBARBITAL [Concomitant]
     Active Substance: PHENOBARBITAL
     Indication: Seizure
  6. PYRIDOXINE [Concomitant]
     Active Substance: PYRIDOXINE
     Indication: Seizure
  7. PYRIDOXAL PHOSPHATE [Concomitant]
     Active Substance: PYRIDOXAL PHOSPHATE
     Indication: Seizure
  8. TOPIRAMATE [Concomitant]
     Active Substance: TOPIRAMATE
     Indication: Seizure
  9. VIGABATRIN [Concomitant]
     Active Substance: VIGABATRIN
     Indication: Seizure

REACTIONS (1)
  - No adverse event [Unknown]
